FAERS Safety Report 7980903-1 (Version None)
Quarter: 2011Q4

REPORT INFORMATION
  Report Type: 
  Country: None (occurrence: None)
  Receive Date: 20111215
  Receipt Date: 20111207
  Transmission Date: 20120403
  Serious: Yes (Disabling, Other)
  Sender: FDA-Public Use
  Company Number: GB-ACCORD-011600

PATIENT
  Age: 61 Year
  Sex: Male

DRUGS (5)
  1. VERAPAMIL [Concomitant]
     Dosage: PRECEDED STATIN BY AT LEAST 1 YEAR, WITHOUT SYMPTOMS
  2. LOSARTAN POTASSIUM [Concomitant]
     Dosage: PRECEDED STATIN BY AT LEAST 1 YEAR, WITHOUT SYMPTOMS
  3. ROSUVASTATIN [Suspect]
     Dosage: TABS 1 (STANDARD START DOSE)
     Route: 048
  4. ASPIRIN [Concomitant]
     Dosage: PRECEDED STATIN BY AT LEAST 1 YEAR, WITHOUT SYMPTOMS
  5. SIMVASTATIN [Suspect]
     Indication: HYPERTENSION
     Route: 048

REACTIONS (5)
  - LIMB DISCOMFORT [None]
  - MYALGIA [None]
  - ASTHENIA [None]
  - BURSITIS [None]
  - APATHY [None]
